FAERS Safety Report 9030502 (Version 5)
Quarter: 2013Q1

REPORT INFORMATION
  Report Type: Report from Study
  Country: US (occurrence: US)
  Receive Date: 20130122
  Receipt Date: 20130321
  Transmission Date: 20140127
  Serious: No
  Sender: FDA-Public Use
  Company Number: US-VERTEX PHARMACEUTICALS INC.-2013-000902

PATIENT
  Age: 61 None
  Sex: Male
  Weight: 117 kg

DRUGS (9)
  1. VX-950 (TELAPREVIR) [Suspect]
     Indication: HEPATITIS C
     Dosage: 750 MG, TID
     Route: 048
     Dates: start: 20130104
  2. PEGASYS [Suspect]
     Indication: HEPATITIS C
     Dosage: 180 ?G, QW
     Route: 058
     Dates: start: 20130104
  3. RIBAVIRIN [Suspect]
     Indication: HEPATITIS C
     Dosage: 600 MG, BID
     Route: 048
     Dates: start: 20130104
  4. VALIUM [Concomitant]
     Indication: ANXIETY
  5. METFORMIN [Concomitant]
     Indication: DIABETES MELLITUS
  6. GLIPIZIDE [Concomitant]
     Indication: DIABETES MELLITUS
  7. ATENOLOL [Concomitant]
     Indication: HYPERTENSION
  8. LISINOPRIL + HIDROCLOROTIAZIDA [Concomitant]
     Indication: HYPERTENSION
  9. IBUPROFEN [Concomitant]
     Indication: DISCOMFORT

REACTIONS (18)
  - Angina pectoris [Not Recovered/Not Resolved]
  - Dyspnoea [Not Recovered/Not Resolved]
  - Headache [Not Recovered/Not Resolved]
  - Skin discolouration [Recovered/Resolved]
  - Lacrimation increased [Not Recovered/Not Resolved]
  - Irritability [Not Recovered/Not Resolved]
  - Laziness [Not Recovered/Not Resolved]
  - Anxiety [Not Recovered/Not Resolved]
  - Dyspepsia [Not Recovered/Not Resolved]
  - Abdominal discomfort [Not Recovered/Not Resolved]
  - Dry skin [Not Recovered/Not Resolved]
  - Injection site erythema [Not Recovered/Not Resolved]
  - Fatigue [Not Recovered/Not Resolved]
  - Rash [Recovered/Resolved]
  - Haemorrhoids [Not Recovered/Not Resolved]
  - Pruritus [Not Recovered/Not Resolved]
  - Nausea [Not Recovered/Not Resolved]
  - Dysgeusia [Not Recovered/Not Resolved]
